FAERS Safety Report 7328199-8 (Version None)
Quarter: 2011Q1

REPORT INFORMATION
  Report Type: 
  Country: None (occurrence: None)
  Receive Date: 20110303
  Receipt Date: 20110224
  Transmission Date: 20110831
  Serious: Yes (Other)
  Sender: FDA-Public Use
  Company Number: US-NOVOPROD-321898

PATIENT
  Age: 75 Year
  Sex: Male
  Weight: 91.61 kg

DRUGS (2)
  1. VICTOZA [Suspect]
     Indication: TYPE 2 DIABETES MELLITUS
     Dosage: 1.2 MG, QD
     Route: 058
  2. LEVEMIR [Concomitant]
     Indication: TYPE 2 DIABETES MELLITUS
     Dosage: 10 U, UNK

REACTIONS (5)
  - NERVOUSNESS [None]
  - NAUSEA [None]
  - SUICIDAL IDEATION [None]
  - DEPRESSION [None]
  - DIARRHOEA [None]
